FAERS Safety Report 16935709 (Version 1)
Quarter: 2019Q4

REPORT INFORMATION
  Report Type: Spontaneous
  Country: US (occurrence: US)
  Receive Date: 20191018
  Receipt Date: 20191018
  Transmission Date: 20200122
  Serious: Yes (Hospitalization)
  Sender: FDA-Public Use
  Company Number: US-VERTEX PHARMACEUTICALS-2019-010019

PATIENT
  Sex: Female

DRUGS (4)
  1. CIPROFLOXACIN. [Concomitant]
     Active Substance: CIPROFLOXACIN
  2. AMITIZA [Concomitant]
     Active Substance: LUBIPROSTONE
  3. SYMDEKO [Suspect]
     Active Substance: IVACAFTOR\TEZACAFTOR
     Indication: CYSTIC FIBROSIS
     Dosage: 100MG TEZACAFTOR/150MG IVACAFTOR AM; 150MG IVACAFTOR PM
     Route: 048
     Dates: start: 20180518
  4. LACTULOSE. [Concomitant]
     Active Substance: LACTULOSE

REACTIONS (1)
  - Respiratory symptom [Recovered/Resolved]

NARRATIVE: CASE EVENT DATE: 2019
